FAERS Safety Report 11811355 (Version 2)
Quarter: 2016Q1

REPORT INFORMATION
  Report Type: Spontaneous
  Country: US (occurrence: US)
  Receive Date: 20151208
  Receipt Date: 20160107
  Transmission Date: 20160525
  Serious: No
  Sender: FDA-Public Use
  Company Number: PHEH2015US025377

PATIENT
  Sex: Female

DRUGS (2)
  1. VIVELLE-DOT [Suspect]
     Active Substance: ESTRADIOL
     Indication: PUBERTY
  2. VIVELLE-DOT [Suspect]
     Active Substance: ESTRADIOL
     Indication: GROWTH RETARDATION
     Dosage: 0.1 MG, QID (4 TIMES DAILY)
     Route: 065

REACTIONS (1)
  - Product use issue [Unknown]
